FAERS Safety Report 8265068-3 (Version None)
Quarter: 2012Q2

REPORT INFORMATION
  Report Type: 
  Country: None (occurrence: None)
  Receive Date: 20120406
  Receipt Date: 20120330
  Transmission Date: 20120825
  Serious: Yes (Death, Other)
  Sender: FDA-Public Use
  Company Number: US-CELGENEUS-163-20785-12032115

PATIENT
  Sex: Female

DRUGS (10)
  1. PREDNISONE TAB [Concomitant]
     Route: 065
  2. NITROSTAT [Concomitant]
     Route: 065
  3. THIAMINE HCL [Concomitant]
     Route: 065
  4. LOPRESSOR [Concomitant]
     Route: 065
  5. PROTONIX [Concomitant]
     Route: 065
  6. THALOMID [Suspect]
     Dosage: 100 MILLIGRAM
     Route: 048
     Dates: start: 20100901, end: 20110601
  7. VICODIN [Concomitant]
     Route: 065
  8. THALOMID [Suspect]
     Dosage: 100 MILLIGRAM
     Route: 048
     Dates: start: 20100601, end: 20100101
  9. COUMADIN [Concomitant]
     Route: 065
  10. THALOMID [Suspect]
     Indication: MYELODYSPLASTIC SYNDROME
     Dosage: 200 MILLIGRAM
     Route: 048
     Dates: start: 20090601, end: 20100601

REACTIONS (3)
  - DEMENTIA ALZHEIMER'S TYPE [None]
  - SPLENOMEGALY [None]
  - DRUG INEFFECTIVE [None]
